FAERS Safety Report 13171494 (Version 3)
Quarter: 2017Q2

REPORT INFORMATION
  Report Type: Spontaneous
  Country: GB (occurrence: GB)
  Receive Date: 20170201
  Receipt Date: 20170616
  Transmission Date: 20170830
  Serious: Yes (Other)
  Sender: FDA-Public Use
  Company Number: GB-LEO PHARMA-244146

PATIENT
  Age: 54 Year
  Sex: Female

DRUGS (1)
  1. PICATO [Suspect]
     Active Substance: INGENOL MEBUTATE
     Indication: ACTINIC KERATOSIS
     Route: 061
     Dates: start: 20160808, end: 20160809

REACTIONS (8)
  - Eye swelling [Recovering/Resolving]
  - Application site scab [Recovering/Resolving]
  - Application site pain [Recovering/Resolving]
  - Alopecia [Recovering/Resolving]
  - Application site erythema [Recovering/Resolving]
  - Application site hypersensitivity [Recovering/Resolving]
  - Angioedema [Recovering/Resolving]
  - Incorrect drug administration duration [Unknown]

NARRATIVE: CASE EVENT DATE: 20160808
